FAERS Safety Report 14599080 (Version 4)
Quarter: 2018Q2

REPORT INFORMATION
  Report Type: Report from Study
  Country: US (occurrence: US)
  Receive Date: 20180305
  Receipt Date: 20180412
  Transmission Date: 20180711
  Serious: Yes (Hospitalization, Other)
  Sender: FDA-Public Use
  Company Number: US-JNJFOC-20180208753

PATIENT
  Age: 53 Year
  Sex: Male
  Weight: 52 kg

DRUGS (17)
  1. IMBRUVICA [Suspect]
     Active Substance: IBRUTINIB
     Indication: MANTLE CELL LYMPHOMA
     Route: 048
     Dates: start: 20180111
  2. PHENERGAN [Concomitant]
     Active Substance: PROMETHAZINE HYDROCHLORIDE
  3. ZOFRAN [Concomitant]
     Active Substance: ONDANSETRON HYDROCHLORIDE
  4. IMBRUVICA [Suspect]
     Active Substance: IBRUTINIB
     Indication: MANTLE CELL LYMPHOMA
     Route: 048
     Dates: start: 201801
  5. IMBRUVICA [Suspect]
     Active Substance: IBRUTINIB
     Indication: MANTLE CELL LYMPHOMA
     Route: 048
     Dates: start: 20180112
  6. IMBRUVICA [Suspect]
     Active Substance: IBRUTINIB
     Indication: MANTLE CELL LYMPHOMA
     Route: 048
     Dates: start: 201802
  7. MOTRIN [Concomitant]
     Active Substance: IBUPROFEN
  8. VITAMIN C [Concomitant]
     Active Substance: ASCORBIC ACID
  9. TAMSULOSIN [Concomitant]
     Active Substance: TAMSULOSIN
  10. MAGNESIUM [Concomitant]
     Active Substance: MAGNESIUM
  11. DIAZEPAM. [Concomitant]
     Active Substance: DIAZEPAM
  12. THERATEARS [Concomitant]
     Active Substance: CARBOXYMETHYLCELLULOSE SODIUM
  13. CLINDAMYCIN. [Concomitant]
     Active Substance: CLINDAMYCIN
  14. OXYCONTIN [Concomitant]
     Active Substance: OXYCODONE HYDROCHLORIDE
  15. IMBRUVICA [Suspect]
     Active Substance: IBRUTINIB
     Indication: MANTLE CELL LYMPHOMA
     Route: 048
     Dates: start: 201801
  16. POTASSIUM GLUCONATE [Concomitant]
     Active Substance: POTASSIUM GLUCONATE
  17. CHLORHEXIDINE [Concomitant]
     Active Substance: CHLORHEXIDINE

REACTIONS (9)
  - Headache [Unknown]
  - Vomiting [Unknown]
  - Deafness [Not Recovered/Not Resolved]
  - Nail infection [Unknown]
  - Pneumonia [Recovered/Resolved]
  - Prostatomegaly [Unknown]
  - Incorrect dose administered [Unknown]
  - Influenza [Unknown]
  - Off label use [Unknown]

NARRATIVE: CASE EVENT DATE: 2018
